FAERS Safety Report 15366227 (Version 1)
Quarter: 2018Q3

REPORT INFORMATION
  Report Type: Spontaneous
  Country: US (occurrence: US)
  Receive Date: 20180831
  Receipt Date: 20180831
  Transmission Date: 20181010
  Serious: Yes (Disabling, Other)
  Sender: FDA-Public Use
  Company Number: None

PATIENT
  Age: 72 Year
  Sex: Female
  Weight: 106.14 kg

DRUGS (7)
  1. ARMOUR THYROID [Concomitant]
     Active Substance: THYROID, PORCINE
  2. FISH OIL [Concomitant]
     Active Substance: FISH OIL
  3. VALSARTAN 80 MG TABLET [Suspect]
     Active Substance: VALSARTAN
     Indication: HYPERTENSION
     Dosage: ?          QUANTITY:1 TABLET;?
     Route: 048
     Dates: start: 20180518, end: 20180719
  4. CO?ENZYME 10 [Concomitant]
  5. MULTI VITAMIN [Concomitant]
     Active Substance: VITAMINS
  6. L?THEANINE [Concomitant]
     Active Substance: DIETARY SUPPLEMENT
  7. ASPRIN [Concomitant]
     Active Substance: ASPIRIN

REACTIONS (8)
  - Blood pressure increased [None]
  - Oropharyngeal pain [None]
  - Cough [None]
  - Fatigue [None]
  - Hypoacusis [None]
  - Otitis media [None]
  - Middle ear effusion [None]
  - Muscle disorder [None]

NARRATIVE: CASE EVENT DATE: 20180607
